FAERS Safety Report 8806382 (Version 7)
Quarter: 2013Q3

REPORT INFORMATION
  Report Type: Spontaneous
  Country: US (occurrence: US)
  Receive Date: 20120925
  Receipt Date: 20130813
  Transmission Date: 20140515
  Serious: Yes (Hospitalization, Other)
  Sender: FDA-Public Use
  Company Number: US-009507513-1103USA00834

PATIENT
  Sex: Female

DRUGS (5)
  1. FOSAMAX [Suspect]
     Indication: OSTEOPOROSIS
     Dosage: 70 MG, QW
     Route: 048
     Dates: start: 1999, end: 2012
  2. FOSAMAX [Suspect]
     Dosage: 10 MG, QD
     Route: 048
     Dates: start: 1999
  3. FOSAMAX [Suspect]
     Indication: OSTEOPOROSIS
     Dosage: 70 MG, QW
     Route: 048
     Dates: start: 20080520, end: 20100804
  4. FOSAMAX PLUS D [Suspect]
     Indication: OSTEOPOROSIS
     Dosage: 70 MG, UNK
     Route: 048
     Dates: start: 20061211, end: 20080503
  5. ALENDRONATE SODIUM [Suspect]
     Dosage: 70 MG, UNK

REACTIONS (33)
  - Femur fracture [Unknown]
  - Open reduction of fracture [Unknown]
  - Skin cancer [Unknown]
  - Hernia repair [Unknown]
  - Metastatic neoplasm [Unknown]
  - Pain [Unknown]
  - Spinal compression fracture [Unknown]
  - Facial bones fracture [Unknown]
  - Osteopenia [Unknown]
  - Glaucoma [Unknown]
  - Hypertension [Unknown]
  - Cardiac murmur functional [Unknown]
  - Hysterectomy [Unknown]
  - Spinal compression fracture [Unknown]
  - Spinal compression fracture [Unknown]
  - Joint injury [Unknown]
  - Chest injury [Unknown]
  - Spinal compression fracture [Unknown]
  - Venous insufficiency [Unknown]
  - Nephrolithiasis [Unknown]
  - Pneumonia [Unknown]
  - Blood cholesterol increased [Unknown]
  - Asthma [Unknown]
  - Varicose vein [Unknown]
  - Diverticulum [Unknown]
  - Osteoarthritis [Unknown]
  - Tooth disorder [Unknown]
  - Dental caries [Unknown]
  - Tooth abscess [Unknown]
  - Back pain [Not Recovered/Not Resolved]
  - Back pain [Unknown]
  - Arthralgia [Not Recovered/Not Resolved]
  - Bone pain [Unknown]
